FAERS Safety Report 4834157-5 (Version None)
Quarter: 2005Q4

REPORT INFORMATION
  Report Type: 
  Country: None (occurrence: None)
  Receive Date: 20051122
  Receipt Date: 20051118
  Transmission Date: 20060501
  Serious: Yes (Other)
  Sender: FDA-Public Use
  Company Number: US-GLAXOSMITHKLINE-A0582818A

PATIENT
  Sex: Male

DRUGS (1)
  1. SENSODYNE-F [Suspect]
     Indication: SENSITIVITY OF TEETH

REACTIONS (2)
  - BLINDNESS [None]
  - OPTIC NERVE DISORDER [None]
